FAERS Safety Report 14446911 (Version 1)
Quarter: 2018Q1

REPORT INFORMATION
  Report Type: Spontaneous
  Country: FR (occurrence: FR)
  Receive Date: 20180126
  Receipt Date: 20180126
  Transmission Date: 20180509
  Serious: Yes (Life-Threatening, Hospitalization)
  Sender: FDA-Public Use
  Company Number: FR-PFIZER INC-2018034045

PATIENT
  Age: 59 Year
  Sex: Male

DRUGS (2)
  1. TEMESTA (LORAZEPAM) [Suspect]
     Active Substance: LORAZEPAM
     Indication: RESPIRATORY DISTRESS
     Dosage: 4 MG, 1X/DAY
     Route: 048
     Dates: start: 20171118, end: 20171119
  2. DIPRIVAN [Suspect]
     Active Substance: PROPOFOL
     Indication: RESPIRATORY DISTRESS
     Dosage: UNK
     Route: 041
     Dates: start: 20171114, end: 20171119

REACTIONS (3)
  - Hepatocellular injury [Not Recovered/Not Resolved]
  - Rhabdomyolysis [Not Recovered/Not Resolved]
  - Product use in unapproved indication [Unknown]

NARRATIVE: CASE EVENT DATE: 201711
